FAERS Safety Report 22264839 (Version 2)
Quarter: 2023Q2

REPORT INFORMATION
  Report Type: Spontaneous
  Country: US (occurrence: US)
  Receive Date: 20230428
  Receipt Date: 20230518
  Transmission Date: 20230722
  Serious: Yes (Other)
  Sender: FDA-Public Use
  Company Number: US-MYOVANT SCIENCES GMBH-2023MYSCI0100698

PATIENT
  Age: 81 Year
  Sex: Male

DRUGS (35)
  1. ORGOVYX [Suspect]
     Active Substance: RELUGOLIX
     Indication: Prostate cancer
     Dosage: 360 MILLIGRAM, ONE TIME DOSE
     Route: 048
     Dates: start: 20221201, end: 20221201
  2. ORGOVYX [Suspect]
     Active Substance: RELUGOLIX
     Dosage: 120 MILLIGRAM, QD
     Route: 048
     Dates: start: 20221202
  3. ORGOVYX [Suspect]
     Active Substance: RELUGOLIX
     Dosage: UNK
  4. CARVEDILOL [Suspect]
     Active Substance: CARVEDILOL
     Indication: Product used for unknown indication
     Dosage: 3.125 MILLIGRAM, QD
     Route: 065
  5. LISINOPRIL [Suspect]
     Active Substance: LISINOPRIL
     Indication: Hypertension
     Dosage: 5 MILLIGRAM
     Route: 065
     Dates: start: 202301, end: 202304
  6. ACETAMINOPHEN [Concomitant]
     Active Substance: ACETAMINOPHEN
     Indication: Pain
     Dosage: UNK
     Route: 065
  7. ANTIHISTAMINES NOS [Concomitant]
     Active Substance: ANTIHISTAMINES NOS
     Indication: Dermatitis
     Dosage: UNK
     Route: 065
     Dates: start: 202301
  8. CALAMINE LOTION PHENOLATED [Concomitant]
     Indication: Rash
     Dosage: UNK
     Route: 061
  9. CHELATED MAGNESIUM                 /01066801/ [Concomitant]
     Indication: Prophylaxis
     Dosage: UNK
     Route: 048
  10. CHELATED MAGNESIUM                 /01066801/ [Concomitant]
     Indication: Neuralgia
  11. CHELATED POTASSIUM [Concomitant]
     Indication: Prophylaxis
     Dosage: UNK
     Route: 048
  12. CHELATED POTASSIUM [Concomitant]
     Indication: Neuralgia
  13. CHELATED ZINC                      /00156501/ [Concomitant]
     Indication: Prophylaxis
     Dosage: UNK
     Route: 048
  14. CHELATED ZINC                      /00156501/ [Concomitant]
     Indication: Neuralgia
  15. FEBUXOSTAT [Concomitant]
     Active Substance: FEBUXOSTAT
     Indication: Product used for unknown indication
     Dosage: UNK
     Route: 065
  16. FISH OIL [Concomitant]
     Active Substance: FISH OIL
     Indication: Product used for unknown indication
     Dosage: UNK
     Route: 065
  17. GLYCOLIC ACID [Concomitant]
     Active Substance: GLYCOLIC ACID
     Indication: Product used for unknown indication
     Dosage: UNK
     Route: 065
  18. IBUPROFEN [Concomitant]
     Active Substance: IBUPROFEN
     Indication: Arthritis
     Dosage: UNK
     Route: 048
  19. IBUPROFEN [Concomitant]
     Active Substance: IBUPROFEN
     Indication: Pain
  20. LECITHIN [Concomitant]
     Active Substance: LECITHIN
     Indication: Product used for unknown indication
     Dosage: UNK
     Route: 065
  21. LORATADINE [Concomitant]
     Active Substance: LORATADINE
     Indication: Dermatitis
     Dosage: UNK
     Route: 065
     Dates: start: 202301
  22. LYRICA [Concomitant]
     Active Substance: PREGABALIN
     Indication: Product used for unknown indication
     Dosage: UNK
     Route: 065
  23. MILK THISTLE PLUS                  /08512201/ [Concomitant]
     Indication: Product used for unknown indication
     Dosage: UNK
     Route: 065
  24. MULTIVITAMIN                       /07504101/ [Concomitant]
     Indication: Product used for unknown indication
     Dosage: UNK
     Route: 065
  25. NAC                                /00082801/ [Concomitant]
     Indication: Product used for unknown indication
     Dosage: UNK
     Route: 065
  26. NAPROSYN                           /00256201/ [Concomitant]
     Indication: Pain
     Dosage: UNK
     Route: 048
  27. NAPROSYN                           /00256201/ [Concomitant]
     Indication: Arthritis
  28. NORTRIPTYLINE [Concomitant]
     Active Substance: NORTRIPTYLINE
     Indication: Product used for unknown indication
     Dosage: UNK
     Route: 065
  29. OMEGA 3                            /01333901/ [Concomitant]
     Indication: Product used for unknown indication
     Dosage: UNK
     Route: 065
  30. PREGABALIN [Concomitant]
     Active Substance: PREGABALIN
     Indication: Occipital neuralgia
     Dosage: 100 MILLIGRAM, TID
     Route: 048
     Dates: start: 202301
  31. TACROLIMUS [Concomitant]
     Active Substance: TACROLIMUS
     Indication: Immunosuppressant drug therapy
     Dosage: UNK
     Route: 065
  32. TRIAMCINOLONE [Concomitant]
     Active Substance: TRIAMCINOLONE
     Indication: Rash
     Dosage: UNK
     Route: 061
  33. TURMERIC                           /01079602/ [Concomitant]
     Indication: Product used for unknown indication
     Dosage: UNK
     Route: 065
  34. ZINC OXIDE [Concomitant]
     Active Substance: ZINC OXIDE
     Indication: Prophylaxis
     Dosage: UNK
     Route: 065
  35. ZYRTEC                             /00884302/ [Concomitant]
     Indication: Pruritus
     Dosage: UNK
     Route: 065
     Dates: end: 202304

REACTIONS (19)
  - Hypotension [Recovering/Resolving]
  - Loss of consciousness [Recovered/Resolved]
  - Dermatitis [Not Recovered/Not Resolved]
  - Breast swelling [Unknown]
  - Lethargy [Unknown]
  - Muscle discomfort [Unknown]
  - Gait disturbance [Unknown]
  - Erythema [Unknown]
  - Memory impairment [Unknown]
  - Dyspnoea [Unknown]
  - Muscle disorder [Unknown]
  - Rash [Unknown]
  - Erectile dysfunction [Not Recovered/Not Resolved]
  - Asthenia [Not Recovered/Not Resolved]
  - Fatigue [Not Recovered/Not Resolved]
  - Depression [Unknown]
  - Bone pain [Unknown]
  - Arthralgia [Unknown]
  - Back pain [Unknown]

NARRATIVE: CASE EVENT DATE: 20230416
